FAERS Safety Report 6791646-4 (Version None)
Quarter: 2010Q2

REPORT INFORMATION
  Report Type: 
  Country: None (occurrence: None)
  Receive Date: 20100624
  Receipt Date: 20090713
  Transmission Date: 20101027
  Serious: Yes (Other)
  Sender: FDA-Public Use
  Company Number: US-PFIZER INC-2008058402

PATIENT
  Sex: Female
  Weight: 50 kg

DRUGS (8)
  1. PROVERA [Suspect]
     Indication: HORMONE REPLACEMENT THERAPY
     Dosage: UNK
     Route: 048
     Dates: end: 19970301
  2. PREMARIN [Suspect]
     Indication: HORMONE REPLACEMENT THERAPY
     Dosage: UNK
     Dates: end: 19970301
  3. PREMPRO [Suspect]
     Indication: HORMONE REPLACEMENT THERAPY
  4. PIROXICAM [Concomitant]
     Indication: ARTHRITIS
     Dosage: 20 MG, UNK
     Dates: start: 19820101
  5. CYCLOBENZAPRINE [Concomitant]
     Indication: ARTHRITIS
     Dosage: 10 MG, UNK
     Dates: start: 19820101
  6. MIRTAZAPINE [Concomitant]
     Indication: DEPRESSION
     Dosage: UNK
     Dates: start: 19880101
  7. EFFEXOR [Concomitant]
     Indication: DEPRESSION
     Dosage: UNK
     Dates: start: 19880101
  8. SEROQUEL [Concomitant]
     Indication: BIPOLAR DISORDER
     Dosage: UNK
     Dates: start: 19880101

REACTIONS (1)
  - BREAST CANCER FEMALE [None]
